FAERS Safety Report 5754756-6 (Version None)
Quarter: 2008Q2

REPORT INFORMATION
  Report Type: 
  Country: None (occurrence: None)
  Receive Date: 20080530
  Receipt Date: 20080524
  Transmission Date: 20081010
  Serious: Yes (Other)
  Sender: FDA-Public Use
  Company Number: PFIZER INC-2008045257

PATIENT

DRUGS (1)
  1. DETROL LA [Suspect]

REACTIONS (1)
  - HYPERTENSION [None]
